FAERS Safety Report 10096187 (Version 1)
Quarter: 2014Q2

REPORT INFORMATION
  Report Type: Spontaneous
  Country: FR (occurrence: FR)
  Receive Date: 20140422
  Receipt Date: 20140422
  Transmission Date: 20141212
  Serious: Yes (Hospitalization)
  Sender: FDA-Public Use
  Company Number: FR-B.I. PHARMACEUTICALS,INC./RIDGEFIELD-2014-BI-17256FF

PATIENT
  Age: 84 Year
  Sex: Female

DRUGS (2)
  1. PRADAXA [Suspect]
     Indication: PRODUCT USED FOR UNKNOWN INDICATION
     Dosage: 220 MG
     Route: 048
     Dates: start: 20130328, end: 201311
  2. PRADAXA [Suspect]
     Dosage: 110 MG
     Route: 048
     Dates: start: 201311, end: 20140126

REACTIONS (2)
  - Cerebral haemorrhage [Recovered/Resolved]
  - Hemiparesis [Recovered/Resolved]
